FAERS Safety Report 9275070 (Version 1)
Quarter: 2013Q2

REPORT INFORMATION
  Report Type: Spontaneous
  Country: US (occurrence: None)
  Receive Date: 20130501
  Receipt Date: 20130501
  Transmission Date: 20140414
  Serious: Yes (Other)
  Sender: FDA-Public Use
  Company Number: None

PATIENT
  Age: 34 Year
  Sex: Female
  Weight: 106.14 kg

DRUGS (2)
  1. HYDROXYZINE HCL [Suspect]
     Indication: INSOMNIA
     Dosage: 50 MG NIGHTLY BEFORE BED  PO
     Route: 048
     Dates: start: 20120401, end: 20121218
  2. HYDROXYZINE HCL [Suspect]
     Indication: PANIC ATTACK
     Dosage: 50 MG NIGHTLY BEFORE BED  PO
     Route: 048
     Dates: start: 20120401, end: 20121218

REACTIONS (1)
  - Paraesthesia [None]
